FAERS Safety Report 4667519-X (Version None)
Quarter: 2005Q2

REPORT INFORMATION
  Report Type: 
  Country: None (occurrence: None)
  Receive Date: 20050519
  Receipt Date: 20050519
  Transmission Date: 20051028
  Serious: Yes (Disabling)
  Sender: FDA-Public Use
  Company Number: None

PATIENT
  Age: 62 Year
  Sex: Male
  Weight: 97.5234 kg

DRUGS (1)
  1. LIPITOR [Suspect]
     Dosage: 10 MG    DAILY   ORAL
     Route: 048
     Dates: start: 20040101, end: 20050101

REACTIONS (3)
  - ANAL HAEMORRHAGE [None]
  - DECREASED ACTIVITY [None]
  - FATIGUE [None]
